FAERS Safety Report 9331418 (Version 1)
Quarter: 2013Q2

REPORT INFORMATION
  Report Type: Spontaneous
  Country: GR (occurrence: GR)
  Receive Date: 20130605
  Receipt Date: 20130605
  Transmission Date: 20140414
  Serious: Yes (Disabling, Other)
  Sender: FDA-Public Use
  Company Number: GR-ACTAVIS-2013-09637

PATIENT
  Age: 59 Year
  Sex: Female

DRUGS (2)
  1. DOCETAXEL (UNKNOWN) [Suspect]
     Indication: BREAST CANCER METASTATIC
     Dosage: 75 MG/M2, 3-WEEKLY TREATMENT REGIMEN
     Route: 042
  2. DEXAMETHASONE [Concomitant]
     Indication: BREAST CANCER METASTATIC
     Dosage: UNK
     Route: 065

REACTIONS (2)
  - Dacryostenosis acquired [Not Recovered/Not Resolved]
  - Lacrimation increased [Not Recovered/Not Resolved]
